FAERS Safety Report 9385841 (Version 1)
Quarter: 2013Q3

REPORT INFORMATION
  Report Type: Report from Study
  Country: CA (occurrence: CA)
  Receive Date: 20130705
  Receipt Date: 20130705
  Transmission Date: 20140515
  Serious: Yes (Other)
  Sender: FDA-Public Use
  Company Number: CA-PURDUE-CAN-2013-0004271

PATIENT
  Sex: Male
  Weight: 78.5 kg

DRUGS (2)
  1. MORPHINE SULFATE [Suspect]
     Indication: PAIN
     Dosage: 20 MG, UNK
     Route: 065
  2. MORPHINE SULFATE [Suspect]
     Dosage: 10 MG, UNK
     Route: 065

REACTIONS (2)
  - Coma [Unknown]
  - Drug ineffective [Unknown]
